FAERS Safety Report 22590883 (Version 2)
Quarter: 2023Q2

REPORT INFORMATION
  Report Type: Spontaneous
  Country: FR (occurrence: FR)
  Receive Date: 20230612
  Receipt Date: 20230621
  Transmission Date: 20230722
  Serious: Yes (Other)
  Sender: FDA-Public Use
  Company Number: FR-AMERICAN REGENT INC-2023001430

PATIENT
  Age: 56 Year
  Sex: Male
  Weight: 82 kg

DRUGS (3)
  1. FERINJECT [Suspect]
     Active Substance: FERRIC CARBOXYMALTOSE
     Indication: Iron deficiency
     Dosage: 1 GRAM (1 PRODUCT VIAL)
     Route: 042
     Dates: start: 20230210, end: 20230210
  2. CEFIDEROCOL [Suspect]
     Active Substance: CEFIDEROCOL
     Indication: Infection
     Dosage: 2 GM 1 IN 1D  (1 PRODUCT VIAL)
     Route: 042
     Dates: start: 20230121, end: 20230303
  3. FERROUS FUMARATE [Concomitant]
     Active Substance: FERROUS FUMARATE
     Indication: Iron deficiency
     Dosage: DOSE NOT KNOWN. 1 PRODUCT VIAL
     Route: 048
     Dates: start: 20230210

REACTIONS (2)
  - Renal tubular disorder [Unknown]
  - Chromaturia [Recovered/Resolved]

NARRATIVE: CASE EVENT DATE: 20230211
